FAERS Safety Report 6091347-4 (Version None)
Quarter: 2009Q1

REPORT INFORMATION
  Report Type: 
  Country: None (occurrence: None)
  Receive Date: 20090225
  Receipt Date: 20090213
  Transmission Date: 20090719
  Serious: Yes (Disabling, Other)
  Sender: FDA-Public Use
  Company Number: US-ROCHE-378079

PATIENT
  Sex: Female
  Weight: 88.5 kg

DRUGS (1)
  1. ACCUTANE [Suspect]
     Indication: ACNE
     Route: 048
     Dates: start: 19930501, end: 19930601

REACTIONS (9)
  - CHRONIC FATIGUE SYNDROME [None]
  - GASTROINTESTINAL DISORDER [None]
  - INFLAMMATORY BOWEL DISEASE [None]
  - INTESTINAL HAEMORRHAGE [None]
  - METAL POISONING [None]
  - NEPHROLITHIASIS [None]
  - PROCTOCOLITIS [None]
  - RECTAL HAEMORRHAGE [None]
  - UTERINE LEIOMYOMA [None]
